FAERS Safety Report 6369780-2 (Version None)
Quarter: 2009Q3

REPORT INFORMATION
  Report Type: 
  Country: None (occurrence: None)
  Receive Date: 20090922
  Receipt Date: 20090922
  Transmission Date: 20100115
  Serious: Yes (Hospitalization)
  Sender: FDA-Public Use
  Company Number: None

PATIENT
  Age: 48 Year
  Sex: Female
  Weight: 70.3075 kg

DRUGS (3)
  1. CARBOPLATIN [Suspect]
     Indication: BREAST CANCER
     Dosage: 911MG Q 3 WEEKS I.V.
     Route: 042
     Dates: start: 20090702
  2. TRASTUZAMAB 2MG/KG [Suspect]
     Indication: BREAST CANCER
     Dosage: 141 MG WEEKLY X 18 I.V.
     Route: 042
     Dates: start: 20090702
  3. ABRAXANE [Suspect]
     Indication: BREAST CANCER
     Dosage: 167MG WEEKLY X 18 I.V.
     Route: 042
     Dates: start: 20090702

REACTIONS (1)
  - INFLUENZA [None]
